FAERS Safety Report 10167721 (Version 3)
Quarter: 2015Q1

REPORT INFORMATION
  Report Type: Spontaneous
  Country: US (occurrence: US)
  Receive Date: 20140512
  Receipt Date: 20150202
  Transmission Date: 20150720
  Serious: Yes (Hospitalization, Other)
  Sender: FDA-Public Use
  Company Number: US-PFIZER INC-2014129254

PATIENT
  Age: 79 Year
  Sex: Male
  Weight: 86.2 kg

DRUGS (24)
  1. COLACE [Concomitant]
     Active Substance: DOCUSATE SODIUM
     Dosage: 100 MG, 1X/DAY
  2. ASPIRIN. [Concomitant]
     Active Substance: ASPIRIN
     Dosage: 81 MG, 1X/DAY
  3. PRILOSEC [Suspect]
     Active Substance: OMEPRAZOLE MAGNESIUM
     Dosage: UNK
  4. ALTACE [Concomitant]
     Active Substance: RAMIPRIL
     Dosage: UNK, 1X/DAY
  5. LISINOPRIL. [Concomitant]
     Active Substance: LISINOPRIL
     Dosage: UNK [5 MG BUT HE TAKES HALF A TABLET OF THAT]
  6. TIKOSYN [Suspect]
     Active Substance: DOFETILIDE
     Indication: VENTRICULAR FIBRILLATION
     Dosage: UNK, 2X/DAY
     Route: 048
     Dates: start: 201401, end: 20140507
  7. COUMADIN [Concomitant]
     Active Substance: WARFARIN SODIUM
     Dosage: 2.5 MG, 1X/DAY
  8. ROPINIROLE. [Concomitant]
     Active Substance: ROPINIROLE
     Indication: RESTLESS LEGS SYNDROME
     Dosage: UNK UNK, 3X/DAY
  9. OMEPRAZOLE. [Concomitant]
     Active Substance: OMEPRAZOLE
     Dosage: 40 MG, 1X/DAY
  10. POTASSIUM [Concomitant]
     Active Substance: POTASSIUM
     Dosage: 10 MG, UNK
  11. PREDNISONE. [Concomitant]
     Active Substance: PREDNISONE
     Dosage: UNK, 3X/DAY
  12. BABY ASPIRIN [Concomitant]
     Active Substance: ASPIRIN
     Dosage: UNK
  13. METOPROLOL [Concomitant]
     Active Substance: METOPROLOL
     Dosage: 25 MG, UNK
  14. RIFADIN [Concomitant]
     Active Substance: RIFAMPIN
     Dosage: 2 MG, UNK
  15. GABAPENTIN. [Concomitant]
     Active Substance: GABAPENTIN
     Dosage: 100 MG, 3X/DAY
  16. FUROSEMIDE. [Concomitant]
     Active Substance: FUROSEMIDE
     Dosage: 40 MG, UNK
  17. CITALOPRAM [Concomitant]
     Active Substance: CITALOPRAM HYDROBROMIDE
     Dosage: UNK, 1X/DAY
  18. PLAVIX [Concomitant]
     Active Substance: CLOPIDOGREL BISULFATE
     Dosage: 75 MG, 1X/DAY
  19. PANTOPRAZOLE [Concomitant]
     Active Substance: PANTOPRAZOLE SODIUM
     Dosage: 40 MG, 2X/DAY
  20. WARFARIN [Concomitant]
     Active Substance: WARFARIN
     Dosage: UNK
  21. TIKOSYN [Suspect]
     Active Substance: DOFETILIDE
     Indication: IMPLANTABLE DEFIBRILLATOR INSERTION
     Dosage: 250 MG, UNK
     Route: 048
  22. METOPROLOL [Concomitant]
     Active Substance: METOPROLOL
     Dosage: UNK, 2X/DAY
  23. ROPINIROLE. [Concomitant]
     Active Substance: ROPINIROLE
     Dosage: 1 MG, 3X/DAY
  24. LIPITOR [Concomitant]
     Active Substance: ATORVASTATIN CALCIUM
     Dosage: 40 MG, UNK

REACTIONS (11)
  - Atrial fibrillation [Unknown]
  - Blood glucose increased [Unknown]
  - Cardiac arrest [Unknown]
  - Urticaria [Unknown]
  - Asthenia [Unknown]
  - Weight decreased [Unknown]
  - Oral disorder [Unknown]
  - Dyspnoea [Unknown]
  - Ventricular fibrillation [Unknown]
  - Oropharyngeal pain [Unknown]
  - Body height decreased [Unknown]

NARRATIVE: CASE EVENT DATE: 201404
